FAERS Safety Report 15747978 (Version 2)
Quarter: 2019Q2

REPORT INFORMATION
  Report Type: Report from Study
  Country: US (occurrence: US)
  Receive Date: 20181221
  Receipt Date: 20190613
  Transmission Date: 20190711
  Serious: No
  Sender: FDA-Public Use
  Company Number: PHEH2018US053005

PATIENT
  Sex: Female

DRUGS (1)
  1. GILENYA [Suspect]
     Active Substance: FINGOLIMOD HYDROCHLORIDE
     Indication: MULTIPLE SCLEROSIS
     Dosage: 0.5 MG, QD
     Route: 048

REACTIONS (12)
  - Photophobia [Unknown]
  - Depression [Unknown]
  - Headache [Unknown]
  - Pain in extremity [Unknown]
  - Back pain [Unknown]
  - Head discomfort [Unknown]
  - Balance disorder [Unknown]
  - Night blindness [Unknown]
  - Visual field defect [Unknown]
  - Nausea [Unknown]
  - Joint swelling [Unknown]
  - Visual impairment [Unknown]
